FAERS Safety Report 8329936-6 (Version None)
Quarter: 2012Q2

REPORT INFORMATION
  Report Type: 
  Country: None (occurrence: None)
  Receive Date: 20120502
  Receipt Date: 20120424
  Transmission Date: 20120825
  Serious: Yes (Other)
  Sender: FDA-Public Use
  Company Number: US-JNJFOC-20120411310

PATIENT
  Sex: Female

DRUGS (2)
  1. STELARA [Suspect]
     Indication: PSORIASIS
     Route: 058
  2. STELARA [Suspect]
     Dosage: REPORTED AS ^A LITTLE OVER 3 YEARS AGO^
     Route: 058

REACTIONS (4)
  - WEIGHT DECREASED [None]
  - AFFECT LABILITY [None]
  - THERAPEUTIC RESPONSE DECREASED [None]
  - DEPRESSION [None]
